FAERS Safety Report 9243174 (Version 2)
Quarter: 2013Q2

REPORT INFORMATION
  Report Type: Spontaneous
  Country: BE (occurrence: BE)
  Receive Date: 20130419
  Receipt Date: 20130424
  Transmission Date: 20140414
  Serious: Yes (Death, Hospitalization, Other)
  Sender: FDA-Public Use
  Company Number: BE-ASTRAZENECA-2013SE25475

PATIENT
  Age: 29836 Day
  Sex: Female

DRUGS (8)
  1. BRILIQUE [Suspect]
     Indication: ACUTE MYOCARDIAL INFARCTION
     Route: 048
     Dates: start: 20130405, end: 20130407
  2. BISOPROLOL [Concomitant]
     Indication: ANXIETY
     Route: 048
  3. BISOPROLOL [Concomitant]
     Indication: ANXIETY
     Route: 048
     Dates: start: 20130406, end: 20130407
  4. ASPIRIN [Concomitant]
     Route: 048
  5. ALISKIREN [Concomitant]
  6. BUMETANIDE [Concomitant]
  7. PANTOPRAZOLE [Concomitant]
  8. FONDAPARINUX [Concomitant]
     Route: 058

REACTIONS (3)
  - Sinus arrest [Recovered/Resolved]
  - Atrioventricular block complete [Recovered/Resolved]
  - Cardiogenic shock [Fatal]
